FAERS Safety Report 25947290 (Version 1)
Quarter: 2025Q4

REPORT INFORMATION
  Report Type: Report from Study
  Country: GB (occurrence: GB)
  Receive Date: 20251022
  Receipt Date: 20251022
  Transmission Date: 20260118
  Serious: Yes (Other)
  Sender: JOHNSON AND JOHNSON
  Company Number: GB-JNJFOC-20251011380

PATIENT
  Sex: Female

DRUGS (1)
  1. SIMPONI [Suspect]
     Active Substance: GOLIMUMAB
     Indication: Rheumatoid arthritis
     Dosage: FORM STRENGTH : 50MG/0.5ML
     Route: 058

REACTIONS (5)
  - Neoplasm malignant [Unknown]
  - Pleural thickening [Unknown]
  - Pancreatic enzymes increased [Unknown]
  - Weight decreased [Unknown]
  - Product dose omission issue [Unknown]
